FAERS Safety Report 10219905 (Version 1)
Quarter: 2014Q2

REPORT INFORMATION
  Report Type: Spontaneous
  Country: AR (occurrence: AR)
  Receive Date: 20140605
  Receipt Date: 20140605
  Transmission Date: 20141212
  Serious: Yes (Other)
  Sender: FDA-Public Use
  Company Number: AR-PFIZER INC-2014151253

PATIENT
  Age: 57 Year
  Sex: Female

DRUGS (1)
  1. INLYTA [Suspect]
     Indication: RENAL CELL CARCINOMA
     Dosage: 5 MG, 1X/DAY
     Dates: start: 20140426, end: 201405

REACTIONS (4)
  - Urinary tract infection [Recovered/Resolved]
  - Viraemia [Recovered/Resolved]
  - Oral mucosal exfoliation [Recovered/Resolved]
  - Blood pressure increased [Recovered/Resolved]
